FAERS Safety Report 5209536-7 (Version None)
Quarter: 2006Q4

REPORT INFORMATION
  Report Type: 
  Country: None (occurrence: None)
  Receive Date: 20061101
  Receipt Date: 20060822
  Transmission Date: 20070319
  Serious: No
  Sender: FDA-Public Use
  Company Number: 2006PV019901

PATIENT
  Age: 51 Year
  Sex: Female
  Weight: 80.7403 kg

DRUGS (4)
  1. SYMLIN [Suspect]
     Indication: DIABETES MELLITUS NON-INSULIN-DEPENDENT
     Dosage: 90 MCG;BID;SC
     Route: 058
     Dates: start: 20060720, end: 20060720
  2. HUMALOG [Concomitant]
  3. HUMULIN N [Concomitant]
  4. GLIPIZIDE [Concomitant]

REACTIONS (1)
  - IMPAIRED GASTRIC EMPTYING [None]
